FAERS Safety Report 5566662-0 (Version None)
Quarter: 2007Q4

REPORT INFORMATION
  Report Type: 
  Country: None (occurrence: None)
  Receive Date: 20071218
  Receipt Date: 20071218
  Transmission Date: 20080405
  Serious: No
  Sender: FDA-Public Use
  Company Number: None

PATIENT
  Age: 40 Year
  Sex: Male
  Weight: 90.7194 kg

DRUGS (10)
  1. FLUPHENAZINE [Suspect]
     Dosage: 60MG PO
     Route: 048
  2. BENADRYL [Concomitant]
  3. BUSPIRONE HCL [Concomitant]
  4. LORAZEPAM [Concomitant]
  5. ASPIRIN [Concomitant]
  6. MULTI-VITAMIN [Concomitant]
  7. LORAZEPAM [Concomitant]
  8. GEMFIBROZIL [Concomitant]
  9. TOPAMAX [Concomitant]
  10. ZIPRASIDONE HCL [Concomitant]

REACTIONS (1)
  - BLOOD CREATINE PHOSPHOKINASE INCREASED [None]
